FAERS Safety Report 22096378 (Version 3)
Quarter: 2023Q2

REPORT INFORMATION
  Report Type: Report from Study
  Country: CA (occurrence: CA)
  Receive Date: 20230315
  Receipt Date: 20230615
  Transmission Date: 20230722
  Serious: Yes (Other)
  Sender: FDA-Public Use
  Company Number: CA-JNJFOC-20230328465

PATIENT
  Age: 68 Year
  Sex: Female
  Weight: 78 kg

DRUGS (3)
  1. REMICADE [Suspect]
     Active Substance: INFLIXIMAB
     Indication: Neurosarcoidosis
     Dosage: PATIENT ALSO HAD INFUSION ON 28/MAR/2022, EXPIRATION DATE 31-AUG-2025, TREATMENT ON HOLD
     Route: 041
     Dates: start: 20220218
  2. BENADRYL [Concomitant]
     Active Substance: DIPHENHYDRAMINE HYDROCHLORIDE
     Indication: Premedication
     Route: 048
  3. TYLENOL [Concomitant]
     Active Substance: ACETAMINOPHEN
     Indication: Premedication
     Route: 048

REACTIONS (9)
  - Hyperventilation [Unknown]
  - Skin discolouration [Unknown]
  - Body temperature decreased [Unknown]
  - Poor peripheral circulation [Unknown]
  - Oxygen saturation decreased [Unknown]
  - Chills [Unknown]
  - Nausea [Unknown]
  - Hypotension [Not Recovered/Not Resolved]
  - Infusion related reaction [Unknown]

NARRATIVE: CASE EVENT DATE: 20230310
